APPROVED DRUG PRODUCT: TREXIMET
Active Ingredient: NAPROXEN SODIUM; SUMATRIPTAN SUCCINATE
Strength: 500MG;EQ 85MG BASE
Dosage Form/Route: TABLET;ORAL
Application: N021926 | Product #001 | TE Code: AB
Applicant: CURRAX PHARMACEUTICALS LLC
Approved: Apr 15, 2008 | RLD: Yes | RS: Yes | Type: RX

PATENTS:
Patent 7332183 | Expires: Oct 2, 2025
Patent 7332183*PED | Expires: Apr 2, 2026